FAERS Safety Report 6168763-5 (Version None)
Quarter: 2009Q2

REPORT INFORMATION
  Report Type: 
  Country: None (occurrence: None)
  Receive Date: 20090427
  Receipt Date: 20090416
  Transmission Date: 20091009
  Serious: Yes (Other)
  Sender: FDA-Public Use
  Company Number: IE-JNJFOC-20090404233

PATIENT
  Age: 49 Year
  Sex: Female

DRUGS (7)
  1. REMICADE [Suspect]
     Route: 042
  2. REMICADE [Suspect]
     Indication: CROHN'S DISEASE
     Route: 042
  3. PENTASA [Concomitant]
  4. NEXIUM [Concomitant]
  5. ACTONEL [Concomitant]
  6. SERTRALINE HCL [Concomitant]
  7. IMURAN [Concomitant]

REACTIONS (2)
  - ERYTHEMA [None]
  - PARAESTHESIA [None]
